FAERS Safety Report 8089079-6 (Version None)
Quarter: 2012Q1

REPORT INFORMATION
  Report Type: 
  Country: None (occurrence: None)
  Receive Date: 20120128
  Receipt Date: 20110624
  Transmission Date: 20120608
  Serious: No
  Sender: FDA-Public Use
  Company Number: US-ABBOTT-11P-163-0834489-00

PATIENT
  Age: 25 Year
  Sex: Female

DRUGS (5)
  1. CITALOPRAM [Concomitant]
     Indication: ANXIETY
  2. ALBUTEROL [Concomitant]
     Indication: ASTHMA
  3. UNKNOWN CREAMS [Concomitant]
     Indication: PSORIASIS
  4. HUMIRA [Suspect]
     Indication: PSORIASIS
     Dates: start: 20100601, end: 20101201
  5. UNKNOWN BIRTH CONTROL [Concomitant]
     Indication: PRODUCT USED FOR UNKNOWN INDICATION
     Dosage: DAILY

REACTIONS (2)
  - INJECTION SITE PAIN [None]
  - UNEVALUABLE EVENT [None]
